FAERS Safety Report 14471895 (Version 6)
Quarter: 2022Q1

REPORT INFORMATION
  Report Type: Report from Study
  Country: JP (occurrence: JP)
  Receive Date: 20180131
  Receipt Date: 20220301
  Transmission Date: 20220423
  Serious: Yes (Hospitalization, Other)
  Sender: FDA-Public Use
  Company Number: JP-BAUSCH-BL-2017-029520

PATIENT
  Age: 62 Year
  Sex: Male
  Weight: 47 kg

DRUGS (17)
  1. BRODALUMAB [Suspect]
     Active Substance: BRODALUMAB
     Indication: Psoriasis
     Route: 058
     Dates: start: 20170414, end: 20170428
  2. BRODALUMAB [Suspect]
     Active Substance: BRODALUMAB
     Route: 058
     Dates: start: 20170512, end: 20170512
  3. BRODALUMAB [Suspect]
     Active Substance: BRODALUMAB
     Dosage: DURATION: 4 MONTHS 5 DAYS
     Route: 058
     Dates: start: 20170602, end: 20171006
  4. FAMOTIDINE [Suspect]
     Active Substance: FAMOTIDINE
     Indication: Gastritis
     Route: 048
     Dates: end: 20171018
  5. FLUNITRAZEPAM [Suspect]
     Active Substance: FLUNITRAZEPAM
     Indication: Insomnia
     Route: 048
     Dates: end: 20171018
  6. AMLODIPINE BESYLATE [Suspect]
     Active Substance: AMLODIPINE BESYLATE
     Indication: Hypertension
     Route: 048
     Dates: end: 20171018
  7. EPERISONE HYDROCHLORIDE [Suspect]
     Active Substance: EPERISONE HYDROCHLORIDE
     Indication: Hemiplegia
     Route: 048
     Dates: end: 20171018
  8. MAGNESIUM OXIDE [Suspect]
     Active Substance: MAGNESIUM OXIDE
     Indication: Constipation
     Route: 048
     Dates: end: 20171018
  9. CYMBALTA [Suspect]
     Active Substance: DULOXETINE HYDROCHLORIDE
     Indication: Hemiplegia
     Route: 048
     Dates: end: 20171018
  10. QUETIAPINE [Suspect]
     Active Substance: QUETIAPINE
     Indication: Hemiplegia
     Route: 048
     Dates: end: 20171018
  11. GOODMIN [Suspect]
     Active Substance: BROTIZOLAM
     Indication: Insomnia
     Route: 048
     Dates: end: 20171018
  12. BETAMETHASONE BUTYRATE PROPIONATE\MAXACALCITOL [Concomitant]
     Active Substance: BETAMETHASONE BUTYRATE PROPIONATE\MAXACALCITOL
     Indication: Psoriasis
     Route: 061
     Dates: end: 20171018
  13. LULICONAZOLE [Concomitant]
     Active Substance: LULICONAZOLE
     Indication: Tinea pedis
     Route: 061
     Dates: start: 20170714, end: 20171018
  14. OXAROL [Concomitant]
     Active Substance: MAXACALCITOL
     Indication: Psoriasis
     Route: 061
     Dates: start: 20170922, end: 20171018
  15. FLURAZEPAM HYDROCHLORIDE [Concomitant]
     Active Substance: FLURAZEPAM HYDROCHLORIDE
     Indication: Product used for unknown indication
     Route: 048
  16. ZYPREXA [Concomitant]
     Active Substance: OLANZAPINE
     Indication: Product used for unknown indication
     Route: 048
  17. ASPIRIN [Concomitant]
     Active Substance: ASPIRIN
     Indication: Product used for unknown indication
     Route: 048

REACTIONS (3)
  - Cerebral infarction [Recovered/Resolved]
  - Hepatic function abnormal [Recovering/Resolving]
  - Tinea pedis [Recovered/Resolved]

NARRATIVE: CASE EVENT DATE: 20170520
